FAERS Safety Report 7320749-0 (Version None)
Quarter: 2011Q1

REPORT INFORMATION
  Report Type: 
  Country: None (occurrence: None)
  Receive Date: 20110228
  Receipt Date: 20110223
  Transmission Date: 20110831
  Serious: Yes (Hospitalization)
  Sender: FDA-Public Use
  Company Number: PL-ROCHE-753626

PATIENT
  Age: 80 Year
  Sex: Female
  Weight: 72 kg

DRUGS (4)
  1. LEUCOVORIN [Concomitant]
  2. AVASTIN [Suspect]
     Dosage: DOSE: 7.5 MG/KG BODY MASS
     Route: 042
     Dates: start: 20100621, end: 20100816
  3. OXALIPLATIN [Concomitant]
  4. 5-FU [Concomitant]

REACTIONS (2)
  - DYSPNOEA EXERTIONAL [None]
  - FIBRIN D DIMER INCREASED [None]
